FAERS Safety Report 9538785 (Version 2)
Quarter: 2013Q4

REPORT INFORMATION
  Report Type: Spontaneous
  Country: US (occurrence: US)
  Receive Date: 20130920
  Receipt Date: 20131003
  Transmission Date: 20140711
  Serious: Yes (Other)
  Sender: FDA-Public Use
  Company Number: PHEH2013US019618

PATIENT
  Sex: Male

DRUGS (4)
  1. GILENYA [Suspect]
     Indication: RELAPSING-REMITTING MULTIPLE SCLEROSIS
     Dosage: 0.5 MG, QD
     Route: 048
     Dates: start: 20130404
  2. ANTIDEPRESSANTS [Concomitant]
  3. CITALOPRAM [Concomitant]
     Dosage: 40 MG, QD
     Route: 048
  4. PROVIGIL//MODAFINIL [Concomitant]
     Dosage: 200 MG, BID
     Route: 048

REACTIONS (2)
  - Hand fracture [Unknown]
  - Fall [Unknown]
